FAERS Safety Report 8960955 (Version 2)
Quarter: 2013Q1

REPORT INFORMATION
  Report Type: Spontaneous
  Country: US (occurrence: US)
  Receive Date: 20121212
  Receipt Date: 20130103
  Transmission Date: 20140127
  Serious: No
  Sender: FDA-Public Use
  Company Number: US-ASTRAZENECA-2012SE90995

PATIENT
  Age: 82 Year
  Sex: Female
  Weight: 69.4 kg

DRUGS (10)
  1. SYMBICORT PMDI [Suspect]
     Indication: CHRONIC OBSTRUCTIVE PULMONARY DISEASE
     Dosage: 160/4.5 UG 2 PUFFS BID
     Route: 055
     Dates: start: 201209
  2. SPARIVA [Suspect]
     Indication: CHRONIC OBSTRUCTIVE PULMONARY DISEASE
     Route: 065
  3. ABELOX [Concomitant]
     Indication: SINUSITIS
  4. CLARITIN [Concomitant]
     Indication: RHINITIS
  5. LASIX [Concomitant]
     Indication: JOINT SWELLING
  6. POTASSIUM [Concomitant]
  7. ZOCOR [Concomitant]
     Indication: BLOOD CHOLESTEROL INCREASED
  8. ALPRAZOLAM [Concomitant]
     Indication: ANXIETY
  9. SUCRALFATE [Concomitant]
     Indication: GASTROOESOPHAGEAL REFLUX DISEASE
  10. FAMOTIDINE [Concomitant]
     Indication: GASTROOESOPHAGEAL REFLUX DISEASE

REACTIONS (6)
  - Sinusitis [Recovered/Resolved]
  - Rhinitis [Recovered/Resolved]
  - Hypoacusis [Unknown]
  - Rash pruritic [Recovered/Resolved]
  - Dysphonia [Unknown]
  - Off label use [Unknown]
